FAERS Safety Report 9153266 (Version 1)
Quarter: 2013Q1

REPORT INFORMATION
  Report Type: Spontaneous
  Country: DK (occurrence: None)
  Receive Date: 20130204
  Receipt Date: 20130204
  Transmission Date: 20140127
  Serious: Yes (Other)
  Sender: FDA-Public Use
  Company Number: 2013MA00785

PATIENT
  Age: 26 Year
  Sex: Female

DRUGS (1)
  1. ACYCLOVIR ORAL SUSPENSION, 200 MG/5 ML (ALPHARMA) (ACICLOVIR) [Suspect]
     Indication: PRODUCT USED FOR UNKNOWN INDICATION
     Dosage: 200 MG; 5XADAY;PO
     Dates: start: 20130104, end: 20130113

REACTIONS (3)
  - Abdominal pain [None]
  - Hallucination [None]
  - Expired drug administered [None]
